FAERS Safety Report 9337341 (Version 2)
Quarter: 2013Q2

REPORT INFORMATION
  Report Type: Spontaneous
  Country: IT (occurrence: IT)
  Receive Date: 20130607
  Receipt Date: 20130617
  Transmission Date: 20140414
  Serious: Yes (Hospitalization)
  Sender: FDA-Public Use
  Company Number: PHHY2013IT057573

PATIENT
  Age: 26 Year
  Sex: Male

DRUGS (7)
  1. CERTICAN [Suspect]
     Indication: IMMUNOSUPPRESSION
     Dosage: 6 MG, QD
     Route: 048
     Dates: start: 20110531
  2. PROGRAF [Suspect]
     Dosage: 4 MG, QD
     Route: 048
     Dates: start: 20110605
  3. DELTACORTENE [Concomitant]
     Indication: POSTOPERATIVE ILEUS
     Dosage: 10 MG, UNK
     Route: 048
     Dates: start: 20110531
  4. LANSOX [Concomitant]
     Dosage: 30 MG, UNK
     Route: 048
     Dates: start: 20110531
  5. NORVASC [Concomitant]
     Dosage: 10 MG, UNK
     Route: 048
  6. BARACLUDE [Concomitant]
     Indication: INFECTION
     Dosage: 15 MG, UNK
     Route: 048
     Dates: start: 20110531
  7. ENAPREN [Concomitant]
     Indication: ESSENTIAL HYPERTENSION
     Dosage: 20 MG, UNK
     Route: 048
     Dates: start: 20110531

REACTIONS (4)
  - Hyperpyrexia [Recovered/Resolved with Sequelae]
  - Pruritus [Recovered/Resolved with Sequelae]
  - Abdominal pain [Recovered/Resolved with Sequelae]
  - Diarrhoea [Recovered/Resolved with Sequelae]
